FAERS Safety Report 7354580-7 (Version None)
Quarter: 2011Q1

REPORT INFORMATION
  Report Type: 
  Country: None (occurrence: None)
  Receive Date: 20110316
  Receipt Date: 20110311
  Transmission Date: 20110831
  Serious: Yes (Death, Life-Threatening, Hospitalization)
  Sender: FDA-Public Use
  Company Number: JP-BAYER-200911836BYL

PATIENT
  Sex: Male
  Weight: 36 kg

DRUGS (4)
  1. NEXAVAR [Suspect]
     Indication: RENAL CELL CARCINOMA
     Dosage: 400 MG (DAILY DOSE), , ORAL
     Route: 048
     Dates: start: 20090514, end: 20090527
  2. PREDONINE [Suspect]
     Indication: RENAL CELL CARCINOMA
     Dosage: 10 MG (DAILY DOSE), , ORAL
     Route: 048
     Dates: start: 20090514, end: 20090527
  3. NEXAVAR [Suspect]
     Dosage: 400 MG (DAILY DOSE), , ORAL
     Route: 048
     Dates: start: 20090713
  4. ZOMETA [Concomitant]
     Dosage: 4 MG (DAILY DOSE), , IV DRIP
     Route: 041
     Dates: start: 20090818, end: 20090908

REACTIONS (4)
  - RENAL CELL CARCINOMA [None]
  - LUNG INFECTION [None]
  - PNEUMONIA BACTERIAL [None]
  - SEPSIS [None]
